FAERS Safety Report 23477975 (Version 1)
Quarter: 2024Q1

REPORT INFORMATION
  Report Type: Spontaneous
  Country: FR (occurrence: FR)
  Receive Date: 20240204
  Receipt Date: 20240204
  Transmission Date: 20240410
  Serious: Yes (Other)
  Sender: FDA-Public Use
  Company Number: FR-BAXTER-2024BAX011837

PATIENT
  Age: 0 Year
  Sex: Male

DRUGS (2)
  1. AMINO ACIDS\DEXTROSE\ELECTROLYTES NOS\SOYBEAN OIL [Suspect]
     Active Substance: AMINO ACIDS\DEXTROSE\ELECTROLYTES NOS\SOYBEAN OIL
     Dosage: AT UNSPECIFIED DOSE AND FREQUENCY DILUTED WITH 150 MILLILITER (ML) WATER FOR INJECTION
     Route: 042
  2. WATER FOR INJECTION [Suspect]
     Active Substance: WATER
     Indication: Medication dilution
     Dosage: 150 MILLILITER (ML) AT UNSPECIFIED FREQUENCY
     Route: 042

REACTIONS (1)
  - Administration site extravasation [Unknown]

NARRATIVE: CASE EVENT DATE: 20230927
